FAERS Safety Report 16864641 (Version 1)
Quarter: 2019Q3

REPORT INFORMATION
  Report Type: Spontaneous
  Country: US (occurrence: US)
  Receive Date: 20190928
  Receipt Date: 20190928
  Transmission Date: 20191005
  Serious: Yes (Other)
  Sender: FDA-Public Use
  Company Number: PHEH2019US039772

PATIENT

DRUGS (5)
  1. FEMARA [Suspect]
     Active Substance: LETROZOLE
     Dosage: CYCLE 2
     Route: 065
  2. DENOSUMAB [Concomitant]
     Active Substance: DENOSUMAB
     Indication: METASTASES TO BONE
     Dosage: 120 MG, (EVERY 28 DAYS)
     Route: 058
     Dates: start: 20190718
  3. IBRANCE [Suspect]
     Active Substance: PALBOCICLIB
     Indication: BREAST CANCER METASTATIC
     Dosage: 100 MG, QD (FROM 1-21 DAYS OF 28)
     Route: 048
     Dates: start: 20190418
  4. FEMARA [Suspect]
     Active Substance: LETROZOLE
     Indication: BREAST CANCER METASTATIC
     Dosage: 2.5 MG, QD
     Route: 048
     Dates: start: 20190418
  5. IBRANCE [Suspect]
     Active Substance: PALBOCICLIB
     Dosage: CYCLE 2
     Route: 065

REACTIONS (4)
  - Leukopenia [Recovering/Resolving]
  - Weight decreased [Unknown]
  - Arthralgia [Unknown]
  - Motor dysfunction [Unknown]

NARRATIVE: CASE EVENT DATE: 20190415
